FAERS Safety Report 7844847-8 (Version None)
Quarter: 2011Q4

REPORT INFORMATION
  Report Type: 
  Country: None (occurrence: None)
  Receive Date: 20111025
  Receipt Date: 20111011
  Transmission Date: 20120403
  Serious: Yes (Hospitalization)
  Sender: FDA-Public Use
  Company Number: DE-VIIV HEALTHCARE LIMITED-B0752147A

PATIENT
  Sex: Male
  Weight: 65.2 kg

DRUGS (3)
  1. MARAVIROC [Suspect]
     Indication: HIV INFECTION
     Dosage: 150MG TWICE PER DAY
     Route: 048
     Dates: start: 20100122
  2. TRUVADA [Concomitant]
     Indication: HIV INFECTION
     Dosage: 1TAB PER DAY
     Dates: start: 20090101
  3. KALETRA [Concomitant]
     Indication: HIV INFECTION
     Dosage: 2TABS TWICE PER DAY
     Dates: start: 20090101

REACTIONS (1)
  - NON-HODGKIN'S LYMPHOMA [None]
